FAERS Safety Report 21903368 (Version 1)
Quarter: 2023Q1

REPORT INFORMATION
  Report Type: Spontaneous
  Country: US (occurrence: None)
  Receive Date: 20230123
  Receipt Date: 20230123
  Transmission Date: 20230417
  Serious: No
  Sender: FDA-Public Use
  Company Number: None

PATIENT
  Age: 48 Year
  Sex: Female

DRUGS (1)
  1. BOTOX [Suspect]
     Active Substance: ONABOTULINUMTOXINA
     Indication: Migraine
     Dosage: OTHER FREQUENCY : Q 90 DAUS;?
     Route: 030
     Dates: start: 20220908, end: 20220908

REACTIONS (2)
  - Muscle tightness [None]
  - Migraine [None]

NARRATIVE: CASE EVENT DATE: 20220908
